FAERS Safety Report 9293659 (Version 3)
Quarter: 2014Q1

REPORT INFORMATION
  Report Type: Spontaneous
  Country: US (occurrence: US)
  Receive Date: 20130516
  Receipt Date: 20140314
  Transmission Date: 20141002
  Serious: No
  Sender: FDA-Public Use
  Company Number: US-009507513-1305USA008431

PATIENT
  Sex: Male

DRUGS (9)
  1. PROPECIA [Suspect]
     Indication: ANDROGENETIC ALOPECIA
     Dosage: 1 MG, QD
     Route: 048
     Dates: start: 20050511, end: 20050812
  2. PROPECIA [Suspect]
     Dosage: 1 MG, UNK
     Route: 048
     Dates: start: 20051031, end: 20071231
  3. PROPECIA [Suspect]
     Dosage: 1 MG, QD
     Route: 048
     Dates: start: 20080506, end: 20100818
  4. PROPECIA [Suspect]
     Dosage: 1 MG, UNK
     Route: 048
     Dates: start: 20100922, end: 20110901
  5. PROPECIA [Suspect]
     Dosage: 1 MG, QD
     Route: 048
     Dates: start: 20110912, end: 20120816
  6. DESOWEN [Concomitant]
     Indication: PSEUDOFOLLICULITIS BARBAE
     Dosage: UNK, BID
     Route: 061
     Dates: start: 20050511
  7. DESOWEN [Concomitant]
     Indication: DERMATITIS ATOPIC
  8. AVACOR [Concomitant]
  9. ROGAINE [Concomitant]
     Indication: ANDROGENETIC ALOPECIA
     Dosage: 5% SOL
     Route: 061

REACTIONS (3)
  - Lentigo [Unknown]
  - Erectile dysfunction [Not Recovered/Not Resolved]
  - Sexual dysfunction [Not Recovered/Not Resolved]
